FAERS Safety Report 25169767 (Version 5)
Quarter: 2025Q2

REPORT INFORMATION
  Report Type: Other
  Country: US (occurrence: US)
  Receive Date: 20250407
  Receipt Date: 20250522
  Transmission Date: 20250717
  Serious: Yes (Other)
  Sender: TRAVERE THERAPEUTICS
  Company Number: US-TRAVERE-2025TVT00439

PATIENT
  Age: 58 Year
  Sex: Female

DRUGS (7)
  1. FILSPARI [Suspect]
     Active Substance: SPARSENTAN
     Indication: Haematuria
     Route: 048
     Dates: start: 202503, end: 20250406
  2. FILSPARI [Suspect]
     Active Substance: SPARSENTAN
     Indication: IgA nephropathy
     Route: 048
     Dates: start: 20250423
  3. FILSPARI [Suspect]
     Active Substance: SPARSENTAN
     Route: 048
  4. CHLORTHALIDONE [Concomitant]
     Active Substance: CHLORTHALIDONE
  5. CALCITRIOL [Concomitant]
     Active Substance: CALCITRIOL
  6. AMLODIPINE [Concomitant]
     Active Substance: AMLODIPINE BESYLATE
  7. DULOXETINE [Concomitant]
     Active Substance: DULOXETINE

REACTIONS (5)
  - Hypotension [None]
  - Knee arthroplasty [Unknown]
  - Asthenia [Unknown]
  - Dizziness [Unknown]
  - Pruritus [Recovering/Resolving]

NARRATIVE: CASE EVENT DATE: 20250301
